FAERS Safety Report 6628062-1 (Version None)
Quarter: 2010Q1

REPORT INFORMATION
  Report Type: 
  Country: None (occurrence: None)
  Receive Date: 20100311
  Receipt Date: 20090814
  Transmission Date: 20100710
  Serious: No
  Sender: FDA-Public Use
  Company Number: A0802220A

PATIENT
  Sex: Female

DRUGS (1)
  1. NICORETTE [Suspect]
     Indication: DRUG USE FOR UNKNOWN INDICATION

REACTIONS (2)
  - ABDOMINAL DISCOMFORT [None]
  - MALAISE [None]
